FAERS Safety Report 7451302 (Version 12)
Quarter: 2012Q4

REPORT INFORMATION
  Report Type: 
  Country: JP (occurrence: JP)
  Receive Date: 20100701
  Receipt Date: 20121008
  Transmission Date: 20130627
  Serious: Yes (Hospitalization, Other)
  Sender: FDA-Public Use
  Company Number: JP-PFIZER INC-2010076776

PATIENT
  Age: 62 Year
  Sex: Female
  Weight: 47.6 kg

DRUGS (8)
  1. TOFACITINIB CITRATE [Suspect]
     Indication: RHEUMATOID ARTHRITIS
     Dosage: 5 mg, 2x/day
     Route: 048
     Dates: start: 20080826, end: 20100620
  2. FLUCAM [Suspect]
     Indication: RHEUMATOID ARTHRITIS
     Dosage: 27 mg, 1x/day
     Route: 048
     Dates: start: 20040124
  3. METHOTREXATE SODIUM [Suspect]
     Indication: RHEUMATOID ARTHRITIS
     Dosage: 12.5 mg, weekly
     Route: 048
     Dates: start: 20060707
  4. FOLIAMIN [Suspect]
     Indication: RHEUMATOID ARTHRITIS
     Dosage: 5 mg, weekly
     Route: 048
     Dates: start: 20080113
  5. CALSLOT [Suspect]
     Indication: HYPERTENSION
     Dosage: 10 mg, 1x/day
     Route: 048
     Dates: start: 20040124
  6. FOSAMAX [Suspect]
     Indication: OSTEOPOROSIS
     Dosage: 35 mg, weekly
     Route: 048
     Dates: start: 20070315
  7. BUFFERIN [Suspect]
     Indication: THROMBOSIS PROPHYLAXIS
     Dosage: 81 mg, 1x/day
     Route: 048
     Dates: start: 20040124
  8. MOHRUS [Concomitant]
     Indication: RHEUMATOID ARTHRITIS
     Dosage: 20 mg, 1x/day
     Route: 062
     Dates: start: 20080908

REACTIONS (2)
  - Convulsion [Recovered/Resolved]
  - Temporal lobe epilepsy [Recovering/Resolving]
